FAERS Safety Report 9627186 (Version 5)
Quarter: 2013Q4

REPORT INFORMATION
  Report Type: Report from Study
  Country: TR (occurrence: TR)
  Receive Date: 20131016
  Receipt Date: 20131230
  Transmission Date: 20140711
  Serious: Yes (Hospitalization, Other)
  Sender: FDA-Public Use
  Company Number: TR-ABBVIE-13P-161-1151839-00

PATIENT
  Age: 34 Year
  Sex: Female
  Weight: 59 kg

DRUGS (4)
  1. LUPRON DEPOT [Suspect]
     Indication: UTERINE LEIOMYOMA
     Dosage: ONE DOSE
     Route: 030
     Dates: start: 2007, end: 20080202
  2. LUPRON DEPOT [Suspect]
     Route: 030
     Dates: start: 20130516, end: 201309
  3. JOLESSA [Concomitant]
     Indication: PRODUCT USED FOR UNKNOWN INDICATION
  4. SEASONALE [Concomitant]
     Indication: PRODUCT USED FOR UNKNOWN INDICATION

REACTIONS (4)
  - Uterine leiomyoma embolisation [Recovered/Resolved]
  - Polymenorrhoea [Recovered/Resolved]
  - Uterine haemorrhage [Recovered/Resolved]
  - Drug ineffective [Unknown]
